FAERS Safety Report 9947487 (Version 1)
Quarter: 2014Q1

REPORT INFORMATION
  Report Type: Report from Study
  Country: US (occurrence: US)
  Receive Date: 20140303
  Receipt Date: 20140303
  Transmission Date: 20141002
  Serious: No
  Sender: FDA-Public Use
  Company Number: US-ABBVIE-13P-163-1064972-00

PATIENT
  Age: 35 Year
  Sex: Female
  Weight: 50.39 kg

DRUGS (3)
  1. HUMIRA [Suspect]
     Indication: CROHN^S DISEASE
     Dates: start: 2010, end: 2011
  2. CYCLOBENZAPRINE [Concomitant]
     Indication: INSOMNIA
  3. JUNEL [Concomitant]
     Indication: CONTRACEPTION

REACTIONS (4)
  - Drug ineffective [Not Recovered/Not Resolved]
  - Injection site urticaria [Unknown]
  - Back pain [Unknown]
  - Crohn^s disease [Unknown]
